FAERS Safety Report 4432513-0 (Version None)
Quarter: 2004Q3

REPORT INFORMATION
  Report Type: 
  Country: None (occurrence: None)
  Receive Date: 20040820
  Receipt Date: 20040811
  Transmission Date: 20050211
  Serious: Yes (Hospitalization)
  Sender: FDA-Public Use
  Company Number: 2004055262

PATIENT
  Age: 51 Year
  Sex: Male
  Weight: 82.5547 kg

DRUGS (1)
  1. NICOTROL [Suspect]
     Indication: SMOKING CESSATION THERAPY
     Dosage: LESS THAN ONE CARTRIDGE, ON AND OFF, INHALATION
     Route: 055

REACTIONS (2)
  - HAEMATURIA [None]
  - RENAL CELL CARCINOMA STAGE UNSPECIFIED [None]
